FAERS Safety Report 20235759 (Version 1)
Quarter: 2021Q4

REPORT INFORMATION
  Report Type: Spontaneous
  Country: US (occurrence: None)
  Receive Date: 20211228
  Receipt Date: 20211228
  Transmission Date: 20220303
  Serious: Yes (Life-Threatening, Hospitalization, Other)
  Sender: FDA-Public Use
  Company Number: US-Hikma Pharmaceuticals USA Inc.-US-H14001-21-05460

PATIENT
  Age: 29 Year
  Sex: Male

DRUGS (1)
  1. FENTANYL [Suspect]
     Active Substance: FENTANYL
     Indication: Product used for unknown indication
     Dosage: UNKNOWN
     Route: 065

REACTIONS (13)
  - Drug withdrawal syndrome [Unknown]
  - Vomiting [Unknown]
  - Nausea [Unknown]
  - Anxiety [Unknown]
  - Pyrexia [Unknown]
  - Tachycardia [Unknown]
  - Tachypnoea [Unknown]
  - Breath sounds abnormal [Unknown]
  - Abdominal tenderness [Unknown]
  - Leukocytosis [Unknown]
  - Acute kidney injury [Unknown]
  - Generalised tonic-clonic seizure [Recovered/Resolved]
  - Oesophageal rupture [Recovered/Resolved]
